FAERS Safety Report 26039019 (Version 3)
Quarter: 2025Q4

REPORT INFORMATION
  Report Type: Spontaneous
  Country: EU (occurrence: EU)
  Receive Date: 20251113
  Receipt Date: 20251215
  Transmission Date: 20260119
  Serious: Yes (Hospitalization, Other)
  Sender: TEVA
  Company Number: EU-JNJFOC-20250534103

PATIENT
  Age: 51 Year
  Sex: Female
  Weight: 68 kg

DRUGS (11)
  1. SILDENAFIL [Suspect]
     Active Substance: SILDENAFIL
     Indication: Pulmonary arterial hypertension
     Dosage: 3X20 MG
     Route: 065
     Dates: start: 202201
  2. SILDENAFIL [Suspect]
     Active Substance: SILDENAFIL
     Indication: Pulmonary arterial hypertension
     Dosage: 3X20 MG
     Route: 065
     Dates: start: 202201
  3. SILDENAFIL [Suspect]
     Active Substance: SILDENAFIL
     Indication: Pulmonary arterial hypertension
     Dosage: 3X20 MG
     Route: 065
     Dates: start: 202201
  4. SILDENAFIL [Suspect]
     Active Substance: SILDENAFIL
     Indication: Pulmonary arterial hypertension
     Dosage: 3X20 MG
     Route: 065
     Dates: start: 202201
  5. VELETRI [Suspect]
     Active Substance: EPOPROSTENOL
     Indication: Pulmonary arterial hypertension
     Dosage: UNK
     Route: 065
     Dates: start: 202209
  6. VELETRI [Suspect]
     Active Substance: EPOPROSTENOL
     Indication: Pulmonary arterial hypertension
     Dosage: UNK
     Route: 065
     Dates: start: 202209
  7. ILOPROST [Suspect]
     Active Substance: ILOPROST
     Indication: Pulmonary arterial hypertension
     Dosage: UNK: RESPIRATORY (INHALATION)
     Route: 065
     Dates: start: 202205, end: 202209
  8. OPSUMIT [Suspect]
     Active Substance: MACITENTAN
     Indication: Pulmonary arterial hypertension
     Dosage: UNK
     Route: 065
     Dates: start: 202211
  9. OPSUMIT [Suspect]
     Active Substance: MACITENTAN
     Indication: Pulmonary arterial hypertension
     Dosage: UNK
     Route: 065
     Dates: start: 202211
  10. BOSENTAN [Suspect]
     Active Substance: BOSENTAN
     Indication: Pulmonary arterial hypertension
     Route: 048
     Dates: start: 202202, end: 202211
  11. BOSENTAN [Suspect]
     Active Substance: BOSENTAN
     Indication: Pulmonary arterial hypertension
     Route: 048
     Dates: start: 202202, end: 202211

REACTIONS (13)
  - Hyperthyroidism [Unknown]
  - Colitis ulcerative [Unknown]
  - Cardiac failure [Unknown]
  - N-terminal prohormone brain natriuretic peptide increased [Unknown]
  - Pleural thickening [Unknown]
  - Oxygen saturation decreased [Unknown]
  - Gastrointestinal disorder [Unknown]
  - Chronic respiratory failure [Unknown]
  - Liver injury [Recovered/Resolved]
  - Pulmonary arterial hypertension [Unknown]
  - Large intestine polyp [Unknown]
  - Drug effect less than expected [Unknown]
  - Lipoma [Unknown]

NARRATIVE: CASE EVENT DATE: 20221101
